FAERS Safety Report 7643490-3 (Version None)
Quarter: 2011Q3

REPORT INFORMATION
  Report Type: 
  Country: None (occurrence: None)
  Receive Date: 20110729
  Receipt Date: 20110721
  Transmission Date: 20111222
  Serious: Yes (Hospitalization)
  Sender: FDA-Public Use
  Company Number: US-BAYER-2011-037464

PATIENT
  Age: 19 Year
  Sex: Female
  Weight: 61.224 kg

DRUGS (18)
  1. PEPCID [Concomitant]
     Dosage: 20 MG, UNK
     Route: 048
  2. CALCIUM ACETATE [Concomitant]
     Dosage: 500 MG, BID
     Route: 048
  3. VITAMIN D [Concomitant]
     Dosage: 400 IU, UNK
     Route: 048
  4. PREDNISONE [Concomitant]
  5. METHOTREXATE [Concomitant]
     Indication: JUVENILE ARTHRITIS
     Dosage: UNK
     Dates: start: 20000101, end: 20090101
  6. ZITHROMAX [Concomitant]
     Dosage: UNK
  7. COLACE [Concomitant]
     Dosage: 100 MG, BID
     Route: 048
  8. GARDASIL VACCINE [Concomitant]
     Dosage: UNK
     Dates: start: 20090101
  9. NAPROSYN [Concomitant]
     Dosage: UNK
     Dates: start: 19910101
  10. AZITHROMYCIN [Concomitant]
  11. YAZ [Suspect]
     Indication: OVARIAN CYST
     Dosage: UNK
     Route: 048
     Dates: start: 20090101, end: 20090301
  12. PIROXICAM [Concomitant]
     Indication: JUVENILE ARTHRITIS
     Dosage: 25 MG, QD
     Route: 048
     Dates: start: 19910101
  13. FOLIC ACID [Concomitant]
     Dosage: 1 MG, QD
     Route: 048
  14. LOVENOX [Concomitant]
     Dosage: 50 MG, UNK
     Route: 058
  15. ANTIBIOTICS [Concomitant]
  16. ENBREL [Concomitant]
     Indication: JUVENILE ARTHRITIS
     Dosage: UNK
     Dates: start: 20040101, end: 20090101
  17. PREDNISOLONE [Concomitant]
  18. FELDENE [Concomitant]

REACTIONS (18)
  - SINUS CONGESTION [None]
  - GRADENIGO'S SYNDROME [None]
  - URINARY TRACT INFECTION [None]
  - HERPES ZOSTER OTICUS [None]
  - CHOLELITHIASIS [None]
  - HYPOXIA [None]
  - PLEOCYTOSIS [None]
  - NAUSEA [None]
  - CAVERNOUS SINUS THROMBOSIS [None]
  - VITH NERVE PARALYSIS [None]
  - ABDOMINAL PAIN [None]
  - INTERSTITIAL LUNG DISEASE [None]
  - HEADACHE [None]
  - HYPOTENSION [None]
  - SEPSIS [None]
  - PELVIC PAIN [None]
  - DIPLOPIA [None]
  - OPHTHALMOPLEGIA [None]
